FAERS Safety Report 20255213 (Version 3)
Quarter: 2022Q1

REPORT INFORMATION
  Report Type: Report from Study
  Country: JP (occurrence: JP)
  Receive Date: 20211230
  Receipt Date: 20220211
  Transmission Date: 20220423
  Serious: Yes (Life-Threatening, Hospitalization, Other)
  Sender: FDA-Public Use
  Company Number: JP-MSD-M2021-27168

PATIENT
  Age: 63 Year
  Sex: Male
  Weight: 47 kg

DRUGS (3)
  1. PEMBROLIZUMAB [Suspect]
     Active Substance: PEMBROLIZUMAB
     Indication: Renal cell carcinoma stage IV
     Dosage: 200 MILLIGRAM, Q3W
     Route: 041
     Dates: start: 20210602, end: 20211006
  2. INLYTA [Concomitant]
     Active Substance: AXITINIB
     Indication: Renal cell carcinoma stage IV
     Dosage: 4 MILLIGRAM, BID
     Route: 048
     Dates: start: 20210602, end: 20210622
  3. INLYTA [Concomitant]
     Active Substance: AXITINIB
     Dosage: 3 MILLIGRAM, BID
     Route: 048
     Dates: start: 20210623, end: 20211030

REACTIONS (2)
  - Interstitial lung disease [Recovering/Resolving]
  - Off label use [Unknown]

NARRATIVE: CASE EVENT DATE: 20210915
